FAERS Safety Report 6444559-1 (Version None)
Quarter: 2009Q4

REPORT INFORMATION
  Report Type: 
  Country: None (occurrence: None)
  Receive Date: 20091118
  Receipt Date: 20090818
  Transmission Date: 20100525
  Serious: No
  Sender: FDA-Public Use
  Company Number: A0803855A

PATIENT

DRUGS (1)
  1. COREG CR [Suspect]
     Indication: CARDIAC FAILURE

REACTIONS (1)
  - EJECTION FRACTION DECREASED [None]
